FAERS Safety Report 7576095-3 (Version None)
Quarter: 2011Q2

REPORT INFORMATION
  Report Type: 
  Country: None (occurrence: None)
  Receive Date: 20110623
  Receipt Date: 20110623
  Transmission Date: 20111010
  Serious: Yes (Other)
  Sender: FDA-Public Use
  Company Number: None

PATIENT
  Sex: Female
  Weight: 65.318 kg

DRUGS (1)
  1. ALENDRONATE SODIUM [Suspect]
     Indication: BONE LOSS
     Dosage: ONE 70MG ONCE WEEK
     Dates: start: 20110314

REACTIONS (3)
  - MUSCLE RUPTURE [None]
  - MUSCLE FATIGUE [None]
  - ASTHENIA [None]
